FAERS Safety Report 7712984-4 (Version None)
Quarter: 2011Q3

REPORT INFORMATION
  Report Type: 
  Country: None (occurrence: None)
  Receive Date: 20110826
  Receipt Date: 20110818
  Transmission Date: 20111222
  Serious: Yes (Other)
  Sender: FDA-Public Use
  Company Number: FR-BAXTER-2011BH027099

PATIENT
  Age: 71 Year
  Sex: Female

DRUGS (14)
  1. GAMMAGARD S/D [Suspect]
     Route: 042
     Dates: start: 20110711, end: 20110711
  2. ACETAMINOPHEN [Concomitant]
     Indication: PRODUCT USED FOR UNKNOWN INDICATION
     Route: 065
  3. DESLORATADINE [Concomitant]
     Route: 048
     Dates: start: 20110708, end: 20110711
  4. ATARAX [Suspect]
     Route: 048
     Dates: start: 20110711, end: 20110711
  5. DESLORATADINE [Suspect]
     Indication: PREMEDICATION
     Route: 048
     Dates: start: 20110711, end: 20110711
  6. GAMMAGARD S/D [Suspect]
     Indication: INCLUSION BODY MYOSITIS
     Route: 042
     Dates: start: 20110711, end: 20110711
  7. ATARAX [Suspect]
     Indication: PREMEDICATION
     Route: 048
     Dates: start: 20110708, end: 20110708
  8. OMEPRAZOLE [Concomitant]
     Indication: PRODUCT USED FOR UNKNOWN INDICATION
     Route: 065
  9. LEVOTHYROXINE SODIUM [Concomitant]
     Indication: PRODUCT USED FOR UNKNOWN INDICATION
     Route: 065
  10. GAMMAGARD S/D [Suspect]
     Route: 042
     Dates: start: 20110711, end: 20110711
  11. ATARAX [Concomitant]
     Route: 048
     Dates: start: 20110708, end: 20110711
  12. GAMMAGARD S/D [Suspect]
     Indication: OFF LABEL USE
     Route: 042
     Dates: start: 20110711, end: 20110711
  13. DESLORATADINE [Suspect]
     Route: 048
     Dates: start: 20110708, end: 20110708
  14. LODINE [Concomitant]
     Indication: PRODUCT USED FOR UNKNOWN INDICATION
     Route: 065

REACTIONS (3)
  - ECZEMA [None]
  - RASH VESICULAR [None]
  - DYSHIDROSIS [None]
